FAERS Safety Report 6443663-1 (Version None)
Quarter: 2009Q4

REPORT INFORMATION
  Report Type: 
  Country: None (occurrence: None)
  Receive Date: 20091117
  Receipt Date: 20091104
  Transmission Date: 20100525
  Serious: Yes (Disabling)
  Sender: FDA-Public Use
  Company Number: PHHY2009CA48300

PATIENT
  Sex: Male

DRUGS (2)
  1. CLOZARIL [Suspect]
     Indication: SCHIZOPHRENIA
     Dosage: 300
     Route: 048
     Dates: start: 20070301
  2. CLOZARIL [Suspect]
     Dosage: 200
     Route: 048
     Dates: end: 20091102

REACTIONS (3)
  - MICTURITION URGENCY [None]
  - POLLAKIURIA [None]
  - URINARY INCONTINENCE [None]
